FAERS Safety Report 8043640-3 (Version None)
Quarter: 2012Q1

REPORT INFORMATION
  Report Type: 
  Country: None (occurrence: None)
  Receive Date: 20120112
  Receipt Date: 20120103
  Transmission Date: 20120608
  Serious: Yes (Hospitalization)
  Sender: FDA-Public Use
  Company Number: FR-ASTRAZENECA-2012SE00487

PATIENT
  Sex: Male

DRUGS (2)
  1. XYLOCAINE [Suspect]
     Indication: NEURALGIA
     Route: 042
     Dates: start: 20111121, end: 20111121
  2. GLUCIDION G5 [Concomitant]

REACTIONS (2)
  - AKATHISIA [None]
  - HYPERTENSION [None]
